FAERS Safety Report 23359917 (Version 2)
Quarter: 2024Q2

REPORT INFORMATION
  Report Type: Spontaneous
  Country: US (occurrence: US)
  Receive Date: 20240103
  Receipt Date: 20240417
  Transmission Date: 20240715
  Serious: Yes (Hospitalization, Other)
  Sender: FDA-Public Use
  Company Number: US-MLMSERVICE-20231215-4729027-1

PATIENT
  Age: 14 Year
  Sex: Female

DRUGS (4)
  1. METHYLPREDNISOLONE [Suspect]
     Active Substance: METHYLPREDNISOLONE
     Indication: Pemphigus
     Dosage: 40 MILLIGRAM
     Route: 042
  2. PREDNISONE [Suspect]
     Active Substance: PREDNISONE
     Indication: Pemphigus
     Dosage: 60 MILLIGRAM
     Route: 048
  3. MYCOPHENOLATE MOFETIL [Suspect]
     Active Substance: MYCOPHENOLATE MOFETIL
     Indication: Pemphigus
     Dosage: 500 MILLIGRAM, ONCE A DAY
     Route: 048
  4. HUMAN IMMUNOGLOBULIN G [Suspect]
     Active Substance: HUMAN IMMUNOGLOBULIN G
     Indication: Pemphigus
     Dosage: 15 GRAM, ONCE A DAY
     Route: 042

REACTIONS (5)
  - Oedema [Recovered/Resolved]
  - Infection [Recovered/Resolved]
  - Cushingoid [Recovered/Resolved]
  - Hypertrichosis [Recovered/Resolved]
  - Drug ineffective [Unknown]
